FAERS Safety Report 5287003-2 (Version None)
Quarter: 2007Q2

REPORT INFORMATION
  Report Type: 
  Country: None (occurrence: None)
  Receive Date: 20070404
  Receipt Date: 20070326
  Transmission Date: 20071010
  Serious: Yes (Hospitalization)
  Sender: FDA-Public Use
  Company Number: JP-PFIZER INC-2007024903

PATIENT
  Age: 80 Year
  Sex: Male

DRUGS (5)
  1. NORVASC [Suspect]
     Indication: HYPERTENSION
     Dosage: DAILY DOSE:5MG
     Route: 048
  2. NU LOTAN [Suspect]
     Indication: HYPERTENSION
     Route: 048
  3. PITAVASTATIN CALCIUM [Concomitant]
     Indication: HYPERLIPIDAEMIA
     Route: 048
  4. DRUG, UNSPECIFIED [Concomitant]
     Indication: GASTROINTESTINAL DISORDER
  5. URSO [Concomitant]

REACTIONS (1)
  - STEVENS-JOHNSON SYNDROME [None]
